FAERS Safety Report 10172968 (Version 1)
Quarter: 2014Q2

REPORT INFORMATION
  Report Type: Spontaneous
  Country: US (occurrence: None)
  Receive Date: 20140415
  Receipt Date: 20140415
  Transmission Date: 20141212
  Serious: Yes (Other)
  Sender: FDA-Public Use
  Company Number: US-013718

PATIENT
  Age: 75 Year
  Sex: Male
  Weight: 174 kg

DRUGS (5)
  1. FIRMAGON [Suspect]
     Indication: PROSTATE CANCER
     Route: 058
     Dates: start: 20130624, end: 20130624
  2. LEUKINE [Concomitant]
  3. XGEVA [Concomitant]
  4. CELEBREX [Concomitant]
  5. METFORMIN [Concomitant]

REACTIONS (9)
  - Terminal state [None]
  - General physical health deterioration [None]
  - Dysuria [None]
  - Weight decreased [None]
  - Decreased appetite [None]
  - Prostatic specific antigen increased [None]
  - Blood testosterone increased [None]
  - Drug ineffective [None]
  - Metastatic pain [None]
